FAERS Safety Report 8474809-1 (Version None)
Quarter: 2012Q2

REPORT INFORMATION
  Report Type: 
  Country: None (occurrence: None)
  Receive Date: 20120628
  Receipt Date: 20120619
  Transmission Date: 20120825
  Serious: Yes (Other)
  Sender: FDA-Public Use
  Company Number: CN-SANOFI-AVENTIS-2012SA043507

PATIENT
  Age: 63 Year
  Sex: Female
  Weight: 165 kg

DRUGS (3)
  1. PLAVIX [Suspect]
     Indication: THROMBOSIS PROPHYLAXIS
     Route: 048
     Dates: start: 20120601
  2. PLAVIX [Suspect]
     Route: 048
     Dates: start: 20111201, end: 20120601
  3. ATORVASTATIN [Concomitant]
     Dosage: DOSE:1 UNIT(S)
     Route: 048
     Dates: start: 20111201

REACTIONS (2)
  - HYPERHIDROSIS [None]
  - CHEST DISCOMFORT [None]
